FAERS Safety Report 12605679 (Version 1)
Quarter: 2016Q3

REPORT INFORMATION
  Report Type: Spontaneous
  Country: US (occurrence: US)
  Receive Date: 20160729
  Receipt Date: 20160729
  Transmission Date: 20161109
  Serious: Yes (Other)
  Sender: FDA-Public Use
  Company Number: US-PAR PHARMACEUTICAL COMPANIES-2016SCPR015673

PATIENT

DRUGS (3)
  1. CHOLESTYRAMINE. [Suspect]
     Active Substance: CHOLESTYRAMINE
     Indication: DIARRHOEA
     Dosage: UNK, UNKNOWN
     Route: 048
     Dates: end: 2016
  2. CHOLESTYRAMINE. [Suspect]
     Active Substance: CHOLESTYRAMINE
     Indication: BILE ACID MALABSORPTION
     Dosage: 36 G, / DAY
     Route: 048
     Dates: start: 2016, end: 2016
  3. CHOLESTYRAMINE. [Suspect]
     Active Substance: CHOLESTYRAMINE
     Dosage: UNK, UNKNOWN
     Route: 048
     Dates: start: 2016

REACTIONS (3)
  - Overdose [Unknown]
  - Hepatic steatosis [Unknown]
  - Product use issue [Unknown]

NARRATIVE: CASE EVENT DATE: 2016
